FAERS Safety Report 18124033 (Version 1)
Quarter: 2020Q3

REPORT INFORMATION
  Report Type: Spontaneous
  Country: US (occurrence: US)
  Receive Date: 20200807
  Receipt Date: 20200807
  Transmission Date: 20201103
  Serious: No
  Sender: FDA-Public Use
  Company Number: None

PATIENT
  Age: 80 Year
  Sex: Male
  Weight: 81 kg

DRUGS (9)
  1. VITAMIN D [Concomitant]
     Active Substance: VITAMIN D NOS
     Dates: start: 20200327
  2. LOSARTAN. [Concomitant]
     Active Substance: LOSARTAN
     Dates: start: 20190916
  3. VIMPAT [Concomitant]
     Active Substance: LACOSAMIDE
     Dates: start: 20200427
  4. AMLODIPINE [Concomitant]
     Active Substance: AMLODIPINE BESYLATE
     Dates: start: 20190327
  5. JAKAFI [Suspect]
     Active Substance: RUXOLITINIB
     Route: 048
  6. PROCRIT [Concomitant]
     Active Substance: ERYTHROPOIETIN
     Dates: start: 20190327
  7. ATORVASTATIN [Concomitant]
     Active Substance: ATORVASTATIN
     Dates: start: 20190327
  8. METOPROLOL. [Concomitant]
     Active Substance: METOPROLOL
     Dates: start: 20190327
  9. CLOPIDOGREL [Concomitant]
     Active Substance: CLOPIDOGREL BISULFATE

REACTIONS (1)
  - Weight decreased [None]

NARRATIVE: CASE EVENT DATE: 20200807
